FAERS Safety Report 6404971-3 (Version None)
Quarter: 2009Q4

REPORT INFORMATION
  Report Type: 
  Country: None (occurrence: None)
  Receive Date: 20091019
  Receipt Date: 20091013
  Transmission Date: 20100525
  Serious: Yes (Death)
  Sender: FDA-Public Use
  Company Number: JP-BAYER-200913464BYL

PATIENT
  Age: 73 Year
  Sex: Male
  Weight: 44 kg

DRUGS (16)
  1. NEXAVAR [Suspect]
     Indication: HEPATIC NEOPLASM MALIGNANT
     Dosage: TOTAL DAILY DOSE: 800 MG  UNIT DOSE: 200 MG
     Route: 048
     Dates: start: 20090831, end: 20090926
  2. ADONA [Concomitant]
     Dosage: TOTAL DAILY DOSE: 90 MG
     Route: 048
  3. CARNACULIN [Concomitant]
     Dosage: TOTAL DAILY DOSE: 150 MG
     Route: 048
  4. URSO 250 [Concomitant]
     Dosage: TOTAL DAILY DOSE: 600 MG
     Route: 048
  5. GASTER D [Concomitant]
     Dosage: TOTAL DAILY DOSE: 40 MG
     Route: 048
     Dates: end: 20090903
  6. LASIX [Concomitant]
     Route: 042
     Dates: start: 20090918, end: 20090927
  7. LASIX [Concomitant]
     Dosage: TOTAL DAILY DOSE: 20 MG
     Route: 048
     Dates: end: 20090926
  8. ALDACTONE [Concomitant]
     Dosage: TOTAL DAILY DOSE: 25 MG
     Route: 048
     Dates: end: 20090926
  9. JUZEN-TAIHO-TO [Concomitant]
     Dosage: TOTAL DAILY DOSE: 3 DF
     Route: 048
     Dates: end: 20090926
  10. TENORMIN [Concomitant]
     Dosage: TOTAL DAILY DOSE: 25 MG
     Route: 048
     Dates: end: 20090926
  11. KARY UNI [Concomitant]
     Dosage: SINCE BEFORE ADMINISTRATION
     Route: 031
     Dates: end: 20090926
  12. NIFLAN [Concomitant]
     Dosage: SINCE BEFORE ADMINISTRATION
     Route: 031
  13. ZYLORIC [Concomitant]
     Dosage: TOTAL DAILY DOSE: 2 DF
     Route: 048
     Dates: end: 20090926
  14. ALLEGRA [Concomitant]
     Dosage: TOTAL DAILY DOSE: 2 DF
     Route: 048
     Dates: end: 20090926
  15. HUMALOG [Concomitant]
     Dosage: SINCE BEFORE ADMINISTRATION
     Route: 058
     Dates: end: 20090926
  16. SOLDACTONE [Concomitant]
     Route: 042
     Dates: start: 20090918, end: 20090927

REACTIONS (3)
  - DECREASED APPETITE [None]
  - DYSPHONIA [None]
  - SHOCK [None]
